FAERS Safety Report 18705278 (Version 3)
Quarter: 2021Q2

REPORT INFORMATION
  Report Type: Spontaneous
  Country: US (occurrence: US)
  Receive Date: 20210106
  Receipt Date: 20210517
  Transmission Date: 20210717
  Serious: Yes (Other)
  Sender: FDA-Public Use
  Company Number: US-GILEAD-2021-0511357

PATIENT
  Age: 34 Year
  Sex: Male
  Weight: 78.93 kg

DRUGS (54)
  1. TRUVADA [Suspect]
     Active Substance: EMTRICITABINE\TENOFOVIR DISOPROXIL FUMARATE
     Dosage: UNK
     Route: 048
     Dates: start: 20080515, end: 20130613
  2. AMOXICILLIN. [Concomitant]
     Active Substance: AMOXICILLIN
  3. PENICILLIN NOS [Concomitant]
     Active Substance: PENICILLIN
  4. LISINOPRIL. [Concomitant]
     Active Substance: LISINOPRIL
  5. CORTISPORIN EYE [Concomitant]
  6. HYDROCODONE/ACETAMINOPHEN [Concomitant]
     Active Substance: ACETAMINOPHEN\HYDROCODONE
  7. NORVIR [Concomitant]
     Active Substance: RITONAVIR
  8. RENVELA [Concomitant]
     Active Substance: SEVELAMER CARBONATE
  9. ACCUPRIL [Concomitant]
     Active Substance: QUINAPRIL HYDROCHLORIDE
  10. SODIUM BICARBONATE. [Concomitant]
     Active Substance: SODIUM BICARBONATE
  11. AMOXICILLIN + CLAVULANIC ACID [Concomitant]
     Active Substance: AMOXICILLIN\CLAVULANIC ACID
  12. AZITHROMYCIN ANHYDROUS. [Concomitant]
     Active Substance: AZITHROMYCIN ANHYDROUS
  13. OMEPRAZOLE. [Concomitant]
     Active Substance: OMEPRAZOLE
  14. TIZANIDINE. [Concomitant]
     Active Substance: TIZANIDINE
  15. BUPRENORPHINE/NALOXONE [Concomitant]
     Active Substance: BUPRENORPHINE\NALOXONE
  16. EPIVIR [Concomitant]
     Active Substance: LAMIVUDINE
  17. EPZICOM [Concomitant]
     Active Substance: ABACAVIR SULFATE\LAMIVUDINE
  18. FUROSEMIDE. [Concomitant]
     Active Substance: FUROSEMIDE
  19. TRUVADA [Suspect]
     Active Substance: EMTRICITABINE\TENOFOVIR DISOPROXIL FUMARATE
     Indication: HIV INFECTION
     Dosage: UNK
     Route: 048
     Dates: start: 2004, end: 2013
  20. TRUVADA [Suspect]
     Active Substance: EMTRICITABINE\TENOFOVIR DISOPROXIL FUMARATE
     Dosage: UNK
     Route: 048
     Dates: start: 200410, end: 20130613
  21. STRIBILD [Suspect]
     Active Substance: COBICISTAT\ELVITEGRAVIR\EMTRICITABINE\TENOFOVIR DISOPROXIL FUMARATE
     Dosage: UNK
     Route: 048
     Dates: start: 20121108, end: 20121129
  22. ACETAMINOPHEN. [Concomitant]
     Active Substance: ACETAMINOPHEN
  23. PROCRIT [Concomitant]
     Active Substance: ERYTHROPOIETIN
  24. HEPARIN [Concomitant]
     Active Substance: HEPARIN SODIUM
  25. PREDNISONE. [Concomitant]
     Active Substance: PREDNISONE
  26. SERTRALINE [Concomitant]
     Active Substance: SERTRALINE HYDROCHLORIDE
  27. ATRIPLA [Suspect]
     Active Substance: EFAVIRENZ\EMTRICITABINE\TENOFOVIR DISOPROXIL FUMARATE
     Indication: PRODUCT USED FOR UNKNOWN INDICATION
     Route: 065
  28. ZIAGEN [Concomitant]
     Active Substance: ABACAVIR SULFATE
  29. ASPRIN [Concomitant]
     Active Substance: ASPIRIN
  30. HYDROCHLOROTHIAZIDE. [Concomitant]
     Active Substance: HYDROCHLOROTHIAZIDE
  31. QUINAPRIL. [Concomitant]
     Active Substance: QUINAPRIL
  32. ALPRAZOLAM. [Concomitant]
     Active Substance: ALPRAZOLAM
  33. IBUPROFEN. [Concomitant]
     Active Substance: IBUPROFEN
  34. LAMIVUDINE. [Concomitant]
     Active Substance: LAMIVUDINE
  35. STRIBILD [Suspect]
     Active Substance: COBICISTAT\ELVITEGRAVIR\EMTRICITABINE\TENOFOVIR DISOPROXIL FUMARATE
     Indication: HIV INFECTION
     Dosage: UNK
     Route: 048
     Dates: start: 20121108, end: 201212
  36. REYATAZ [Concomitant]
     Active Substance: ATAZANAVIR SULFATE
  37. VITAMIN D [VITAMIN D NOS] [Concomitant]
     Active Substance: VITAMIN D NOS
     Dosage: UNK
  38. TIVICAY [Concomitant]
     Active Substance: DOLUTEGRAVIR SODIUM
  39. SODIUM POLYSTYRENE SULFONATE. [Concomitant]
     Active Substance: SODIUM POLYSTYRENE SULFONATE
  40. DIFLUCAN [Concomitant]
     Active Substance: FLUCONAZOLE
  41. PROMETHAZINE [Concomitant]
     Active Substance: PROMETHAZINE HYDROCHLORIDE
  42. AURYXIA [Concomitant]
     Active Substance: TETRAFERRIC TRICITRATE DECAHYDRATE
  43. ONDANSETRON [Concomitant]
     Active Substance: ONDANSETRON
  44. ABACAVIR. [Concomitant]
     Active Substance: ABACAVIR
  45. TRUVADA [Suspect]
     Active Substance: EMTRICITABINE\TENOFOVIR DISOPROXIL FUMARATE
     Dosage: UNK
     Route: 048
     Dates: start: 2004, end: 2012
  46. STRIBILD [Suspect]
     Active Substance: COBICISTAT\ELVITEGRAVIR\EMTRICITABINE\TENOFOVIR DISOPROXIL FUMARATE
     Dosage: UNK
     Route: 048
     Dates: start: 2004, end: 2012
  47. NEPHRO VITE RX [Concomitant]
     Active Substance: ASCORBIC ACID\BIOTIN\CALCIUM PANTOTHENATE\CYANOCOBALAMIN\FOLIC ACID\NIACINAMIDE\PYRIDOXINE HYDROCHLORIDE\RIBOFLAVIN\THIAMINE MONONITRATE
  48. CALCITRIOL. [Concomitant]
     Active Substance: CALCITRIOL
  49. SUSTIVA [Concomitant]
     Active Substance: EFAVIRENZ
  50. AMLODIPINE [Concomitant]
     Active Substance: AMLODIPINE BESYLATE
  51. OXYCODONE AND ACETAMINOPHEN [Concomitant]
     Active Substance: ACETAMINOPHEN\OXYCODONE HYDROCHLORIDE
  52. CEPHALEXINE [Concomitant]
     Active Substance: CEPHALEXIN
  53. CIPROFLOXACIN. [Concomitant]
     Active Substance: CIPROFLOXACIN
  54. DIPHENOXYLATE/ATROPINE [Concomitant]
     Active Substance: ATROPINE\DIPHENOXYLATE

REACTIONS (12)
  - Tooth loss [Not Recovered/Not Resolved]
  - Anxiety [Not Recovered/Not Resolved]
  - Delusional disorder, unspecified type [Unknown]
  - Anxiety [Unknown]
  - Renal failure [Not Recovered/Not Resolved]
  - Depression [Not Recovered/Not Resolved]
  - End stage renal disease [Not Recovered/Not Resolved]
  - Clavicle fracture [Unknown]
  - Chronic kidney disease [Unknown]
  - Night sweats [Unknown]
  - Acute kidney injury [Unknown]
  - Depression [Unknown]

NARRATIVE: CASE EVENT DATE: 20090326
